FAERS Safety Report 18855941 (Version 1)
Quarter: 2021Q1

REPORT INFORMATION
  Report Type: Spontaneous
  Country: GB (occurrence: GB)
  Receive Date: 20210206
  Receipt Date: 20210206
  Transmission Date: 20210420
  Serious: Yes (Other)
  Sender: FDA-Public Use
  Company Number: GB-ACCORD-216363

PATIENT
  Age: 65 Year
  Sex: Female
  Weight: 86 kg

DRUGS (7)
  1. OXALIPLATIN. [Suspect]
     Active Substance: OXALIPLATIN
     Indication: COLORECTAL CANCER
     Dosage: 250 MG
     Route: 042
     Dates: start: 20201203, end: 20201203
  2. DOMPERIDONE [Concomitant]
     Active Substance: DOMPERIDONE
     Indication: ILL-DEFINED DISORDER
  3. CHLORPHENAMINE [Concomitant]
     Active Substance: CHLORPHENIRAMINE MALEATE
     Indication: ILL-DEFINED DISORDER
  4. DEXAMETHASONE. [Concomitant]
     Active Substance: DEXAMETHASONE
     Indication: ILL-DEFINED DISORDER
  5. ONDANSETRON [Concomitant]
     Active Substance: ONDANSETRON
     Indication: ILL-DEFINED DISORDER
  6. PARACETAMOL [Concomitant]
     Active Substance: ACETAMINOPHEN
     Indication: ILL-DEFINED DISORDER
  7. CAPECITABINE. [Concomitant]
     Active Substance: CAPECITABINE
     Indication: ILL-DEFINED DISORDER

REACTIONS (1)
  - Bladder dysfunction [Recovered/Resolved]

NARRATIVE: CASE EVENT DATE: 20201203
